FAERS Safety Report 8760251 (Version 1)
Quarter: 2012Q4

REPORT INFORMATION
  Report Type: Spontaneous
  Country: US (occurrence: None)
  Receive Date: 20120828
  Receipt Date: 20120828
  Transmission Date: 20130627
  Serious: No
  Sender: FDA-Public Use
  Company Number: None

PATIENT
  Sex: Female
  Weight: 77.57 kg

DRUGS (8)
  1. ESCITALOPRAM [Suspect]
     Indication: DEPRESSION
     Route: 048
     Dates: start: 201208
  2. CRESTOR [Concomitant]
  3. SPIRONOLACTONE [Concomitant]
  4. CATAPRES [Concomitant]
  5. TUMICELEX [Concomitant]
  6. SINGULAIR [Concomitant]
  7. PREMARIN [Concomitant]
  8. ZYRTEC [Concomitant]

REACTIONS (6)
  - Drug intolerance [None]
  - Headache [None]
  - Nausea [None]
  - Dizziness [None]
  - Dry mouth [None]
  - Product substitution issue [None]
